FAERS Safety Report 21242279 (Version 1)
Quarter: 2022Q3

REPORT INFORMATION
  Report Type: Spontaneous
  Country: DE (occurrence: DE)
  Receive Date: 20220823
  Receipt Date: 20220823
  Transmission Date: 20221027
  Serious: Yes (Death, Hospitalization, Other)
  Sender: FDA-Public Use
  Company Number: None

PATIENT
  Age: 80 Year
  Sex: Male
  Weight: 61 kg

DRUGS (6)
  1. DOXORUBICIN [Suspect]
     Active Substance: DOXORUBICIN
     Indication: B-cell lymphoma
     Dosage: DAILY DOSE: 80 MG MILLGRAM(S) EVERY 2 WEEKS
     Route: 065
     Dates: start: 20140718, end: 20140908
  2. DOXORUBICIN [Suspect]
     Active Substance: DOXORUBICIN
     Dosage: DAILY DOSE: 80 MG MILLGRAM(S) EVERY 2 WEEKS
     Route: 065
     Dates: start: 20140918
  3. HYALURONIDASE (HUMAN RECOMBINANT)\RITUXIMAB [Suspect]
     Active Substance: HYALURONIDASE (HUMAN RECOMBINANT)\RITUXIMAB
     Indication: B-cell lymphoma
     Dosage: 1400 MG, EVERY 2 WK
     Route: 065
     Dates: start: 20140804, end: 20140908
  4. VINCRISTINE [Suspect]
     Active Substance: VINCRISTINE
     Indication: B-cell lymphoma
     Dosage: DAILY DOSE: 1 MG MILLGRAM(S) EVERY 2 WEEKS
     Route: 065
     Dates: start: 20140718, end: 20140908
  5. VINCRISTINE [Suspect]
     Active Substance: VINCRISTINE
     Dosage: DAILY DOSE: 1 MG MILLGRAM(S) EVERY 2 WEEKS
     Route: 065
     Dates: start: 20140918
  6. MABTHERA [Suspect]
     Active Substance: RITUXIMAB
     Indication: B-cell lymphoma
     Dosage: 600 MG
     Route: 065
     Dates: start: 20140717, end: 20140717

REACTIONS (10)
  - Diarrhoea [Fatal]
  - Acute kidney injury [Fatal]
  - Sepsis [Fatal]
  - Gastric ulcer [Unknown]
  - General physical health deterioration [Unknown]
  - Pleural effusion [Unknown]
  - Colitis [Unknown]
  - Pain [Unknown]
  - Anaemia [Unknown]
  - Dehydration [Recovered/Resolved]

NARRATIVE: CASE EVENT DATE: 20140916
